FAERS Safety Report 9405798 (Version 1)
Quarter: 2013Q3

REPORT INFORMATION
  Report Type: Spontaneous
  Country: US (occurrence: US)
  Receive Date: 20130717
  Receipt Date: 20130717
  Transmission Date: 20140515
  Serious: No
  Sender: FDA-Public Use
  Company Number: US-009507513-1307USA004194

PATIENT
  Age: 59 Year
  Sex: Female

DRUGS (2)
  1. JANUVIA [Suspect]
     Indication: DIABETES MELLITUS
     Dosage: 50 MG TWICE DAILY
     Route: 048
     Dates: start: 201306
  2. PRINIVIL [Concomitant]
     Dosage: 1/2 OF 5 MG, FREQUENCY UNSPECIFIED

REACTIONS (7)
  - Micturition disorder [Not Recovered/Not Resolved]
  - Drug effect delayed [Unknown]
  - Inappropriate schedule of drug administration [Unknown]
  - Nasopharyngitis [Unknown]
  - Blood triglycerides increased [Unknown]
  - Abdominal pain [Unknown]
  - Back pain [Unknown]
